FAERS Safety Report 20911206 (Version 2)
Quarter: 2022Q2

REPORT INFORMATION
  Report Type: Spontaneous
  Country: US (occurrence: US)
  Receive Date: 20220603
  Receipt Date: 20220617
  Transmission Date: 20220721
  Serious: Yes (Other)
  Sender: FDA-Public Use
  Company Number: US-BEH-2022145951

PATIENT
  Age: 62 Year
  Sex: Female

DRUGS (25)
  1. HIZENTRA [Suspect]
     Active Substance: HUMAN IMMUNOGLOBULIN G
     Indication: Selective IgG subclass deficiency
     Dosage: 6 GRAM, QW
     Route: 058
     Dates: start: 201910
  2. HIZENTRA [Suspect]
     Active Substance: HUMAN IMMUNOGLOBULIN G
     Dosage: 6 GRAM, QW
     Route: 058
     Dates: start: 20220519
  3. HIZENTRA [Suspect]
     Active Substance: HUMAN IMMUNOGLOBULIN G
     Dosage: UNK
     Route: 058
     Dates: start: 20220602
  4. PRAZOSIN HYDROCHLORIDE [Concomitant]
     Active Substance: PRAZOSIN HYDROCHLORIDE
  5. ASPIRIN [Concomitant]
     Active Substance: ASPIRIN
  6. ASPIRIN [Concomitant]
     Active Substance: ASPIRIN
  7. VITAMIN D2 [Concomitant]
     Active Substance: ERGOCALCIFEROL
  8. CLINDAMICIN [CLINDAMYCIN HYDROCHLORIDE] [Concomitant]
  9. LIDOCAINE [Concomitant]
     Active Substance: LIDOCAINE
  10. MOBIC [Concomitant]
     Active Substance: MELOXICAM
  11. DEXILANT [Concomitant]
     Active Substance: DEXLANSOPRAZOLE
  12. ABILIFY [Concomitant]
     Active Substance: ARIPIPRAZOLE
  13. BELSOMRA [Concomitant]
     Active Substance: SUVOREXANT
  14. BUSPIRONE HCL [Concomitant]
     Active Substance: BUSPIRONE HYDROCHLORIDE
  15. FENTANYL [Concomitant]
     Active Substance: FENTANYL
  16. INDERAL LA [Concomitant]
     Active Substance: PROPRANOLOL HYDROCHLORIDE
  17. KLONOPIN [Concomitant]
     Active Substance: CLONAZEPAM
  18. NATURE-THROID [Concomitant]
     Active Substance: THYROID, PORCINE
  19. NORCO [Concomitant]
     Active Substance: ACETAMINOPHEN\HYDROCODONE BITARTRATE
  20. PRILOSEC [Concomitant]
     Active Substance: OMEPRAZOLE MAGNESIUM
  21. PROAIR HFA [Concomitant]
     Active Substance: ALBUTEROL SULFATE
  22. VITAMIN D3 [Concomitant]
     Active Substance: CHOLECALCIFEROL
  23. ZANAFLEX [Concomitant]
     Active Substance: TIZANIDINE HYDROCHLORIDE
  24. ZANTAC [Concomitant]
     Active Substance: RANITIDINE HYDROCHLORIDE
  25. ZOLOFT [Concomitant]
     Active Substance: SERTRALINE HYDROCHLORIDE

REACTIONS (14)
  - Post-acute COVID-19 syndrome [Unknown]
  - Asthenia [Unknown]
  - Dyspnoea [Unknown]
  - Asthma [Unknown]
  - Chest pain [Unknown]
  - Cardiac disorder [Unknown]
  - Heart rate abnormal [Unknown]
  - Peripheral swelling [Unknown]
  - Weight loss poor [Unknown]
  - Epstein-Barr virus infection [Unknown]
  - Cytomegalovirus infection [Unknown]
  - Lyme disease [Unknown]
  - Glucose tolerance impaired [Unknown]
  - Infusion site rash [Unknown]

NARRATIVE: CASE EVENT DATE: 20211201
